FAERS Safety Report 13644348 (Version 1)
Quarter: 2017Q2

REPORT INFORMATION
  Report Type: Spontaneous
  Country: US (occurrence: US)
  Receive Date: 20170612
  Receipt Date: 20170612
  Transmission Date: 20170830
  Serious: No
  Sender: FDA-Public Use
  Company Number: US-ROCHE-1294878

PATIENT
  Sex: Male

DRUGS (1)
  1. XELODA [Suspect]
     Active Substance: CAPECITABINE
     Indication: LARYNGEAL CANCER
     Dosage: QAM 4TABS, QPM DAY 1-14 Q 21D
     Route: 048
     Dates: start: 20131009

REACTIONS (1)
  - Neuropathy peripheral [Not Recovered/Not Resolved]
